FAERS Safety Report 7344234-5 (Version None)
Quarter: 2011Q1

REPORT INFORMATION
  Report Type: 
  Country: None (occurrence: None)
  Receive Date: 20110310
  Receipt Date: 20100902
  Transmission Date: 20110831
  Serious: No
  Sender: FDA-Public Use
  Company Number: A0879179A

PATIENT
  Age: 53 Year
  Sex: Male

DRUGS (1)
  1. NICORETTE [Suspect]
     Dates: start: 20100831

REACTIONS (3)
  - RESTLESSNESS [None]
  - DRUG ADMINISTRATION ERROR [None]
  - PSYCHOMOTOR HYPERACTIVITY [None]
